FAERS Safety Report 6951124-6 (Version None)
Quarter: 2010Q3

REPORT INFORMATION
  Report Type: 
  Country: None (occurrence: None)
  Receive Date: 20100828
  Receipt Date: 20100309
  Transmission Date: 20110219
  Serious: No
  Sender: FDA-Public Use
  Company Number: US-ABBOTT-10P-163-0632136-00

PATIENT
  Sex: Female
  Weight: 50.848 kg

DRUGS (9)
  1. NIASPAN [Suspect]
     Indication: BLOOD CHOLESTEROL INCREASED
     Dates: start: 20100304
  2. PRIMIDONE [Suspect]
     Indication: PARKINSON'S DISEASE
     Dates: start: 20090101
  3. CARBIDOPA-LEVO [Concomitant]
     Indication: PARKINSON'S DISEASE
  4. PRAMIPEXOLE [Concomitant]
     Indication: PARKINSON'S DISEASE
  5. RED RICE YEAST [Concomitant]
     Indication: HYPERTENSION
  6. FLAXSEED OIL [Concomitant]
     Indication: HYPERTENSION
  7. FISH OIL [Concomitant]
     Indication: PRURITUS
  8. FISH OIL [Concomitant]
     Indication: BLOOD CHOLESTEROL INCREASED
  9. WOMEN'S MULTIVITAMIN WITH CALCIUM [Concomitant]
     Indication: PRODUCT USED FOR UNKNOWN INDICATION

REACTIONS (1)
  - INSOMNIA [None]
